FAERS Safety Report 21795319 (Version 1)
Quarter: 2022Q4

REPORT INFORMATION
  Report Type: Report from Study
  Country: JP (occurrence: JP)
  Receive Date: 20221229
  Receipt Date: 20221229
  Transmission Date: 20230113
  Serious: Yes (Hospitalization)
  Sender: FDA-Public Use
  Company Number: JP-CHUGAI-2022051642AA

PATIENT
  Age: 74 Year
  Sex: Female
  Weight: 51.7 kg

DRUGS (8)
  1. BEVACIZUMAB [Suspect]
     Active Substance: BEVACIZUMAB
     Indication: Breast cancer recurrent
     Dosage: 10 MILLIGRAM/KILOGRAM, DAY1,15
     Route: 041
     Dates: start: 20220524
  2. PACLITAXEL [Suspect]
     Active Substance: PACLITAXEL
     Indication: Breast cancer recurrent
     Dosage: 90 MILLIGRAM/SQ. METER
     Route: 041
     Dates: start: 20220524
  3. PACLITAXEL [Suspect]
     Active Substance: PACLITAXEL
     Dosage: 65 MILLIGRAM/SQ. METER, DAY1,8,15
     Route: 041
     Dates: start: 20220621
  4. ELIQUIS [Suspect]
     Active Substance: APIXABAN
     Indication: Venous thrombosis limb
     Dosage: 5 MILLIGRAM, BID
     Route: 048
     Dates: end: 20221222
  5. FAMOTIDINE [Concomitant]
     Active Substance: FAMOTIDINE
     Indication: Gastritis prophylaxis
     Dosage: 20 MILLIGRAM, BID
     Route: 048
  6. MIYA-BM [Concomitant]
     Active Substance: CLOSTRIDIUM BUTYRICUM SPORES STRAIN M-55
     Indication: Constipation
     Dosage: 1 DOSAGE FORM, TID
     Route: 048
  7. SODIUM PICOSULFATE [Concomitant]
     Active Substance: SODIUM PICOSULFATE
     Indication: Constipation
     Dosage: UNK, PRN
     Route: 048
     Dates: start: 20220527
  8. OLOPATADINE HYDROCHLORIDE [Concomitant]
     Active Substance: OLOPATADINE HYDROCHLORIDE
     Indication: Prophylaxis
     Dosage: 5 MILLIGRAM, BID
     Route: 048

REACTIONS (1)
  - Haematemesis [Recovering/Resolving]

NARRATIVE: CASE EVENT DATE: 20221219
